FAERS Safety Report 15769292 (Version 21)
Quarter: 2022Q1

REPORT INFORMATION
  Report Type: Other
  Country: DE (occurrence: None)
  Receive Date: 20181228
  Receipt Date: 20220316
  Transmission Date: 20220424
  Serious: Yes (Hospitalization, Other)
  Sender: FDA-Public Use
  Company Number: DE-ROCHE-2233008

PATIENT
  Age: 46 Year
  Sex: Female

DRUGS (14)
  1. OCREVUS [Suspect]
     Active Substance: OCRELIZUMAB
     Indication: Relapsing-remitting multiple sclerosis
     Dosage: 300 MG AT DAY 0 AND 14, FOLLOWED BY 600 MG EVERY 6 MONTHS
     Route: 042
     Dates: start: 20181126, end: 20181126
  2. OCREVUS [Suspect]
     Active Substance: OCRELIZUMAB
     Dosage: ONCE
     Route: 042
     Dates: start: 20181213, end: 20181213
  3. OCREVUS [Suspect]
     Active Substance: OCRELIZUMAB
     Route: 042
     Dates: start: 20200604
  4. OCREVUS [Suspect]
     Active Substance: OCRELIZUMAB
     Route: 042
     Dates: start: 20201207
  5. OCREVUS [Suspect]
     Active Substance: OCRELIZUMAB
     Route: 042
  6. OCREVUS [Suspect]
     Active Substance: OCRELIZUMAB
     Route: 042
     Dates: start: 20210819
  7. COMIRNATY [Suspect]
     Active Substance: TOZINAMERAN
     Indication: COVID-19 immunisation
     Route: 065
     Dates: start: 20210615, end: 20210615
  8. COMIRNATY [Suspect]
     Active Substance: TOZINAMERAN
     Route: 065
     Dates: start: 20210706, end: 20210706
  9. COMIRNATY [Suspect]
     Active Substance: TOZINAMERAN
     Dosage: BOOSTER DOSE.
     Route: 065
     Dates: start: 202112, end: 202112
  10. ESOMEPRAZOLE [Concomitant]
     Active Substance: ESOMEPRAZOLE
  11. CHOLECALCIFEROL [Concomitant]
     Active Substance: CHOLECALCIFEROL
  12. DALFAMPRIDINE [Concomitant]
     Active Substance: DALFAMPRIDINE
     Dosage: 1-0-1
  13. NOVALGIN (METAMIZOLE SODIUM) [Concomitant]
     Active Substance: METAMIZOLE SODIUM
  14. NOVALGIN (METAMIZOLE SODIUM) [Concomitant]
     Active Substance: METAMIZOLE SODIUM
     Route: 048

REACTIONS (31)
  - Erysipelas [Unknown]
  - Multiple sclerosis relapse [Recovered/Resolved]
  - Thrombosis [Recovered/Resolved]
  - Central nervous system lesion [Not Recovered/Not Resolved]
  - Herpes zoster [Recovered/Resolved]
  - Headache [Recovered/Resolved]
  - Fatigue [Recovered/Resolved]
  - Lipoedema [Recovering/Resolving]
  - Pain [Not Recovered/Not Resolved]
  - Visual impairment [Not Recovered/Not Resolved]
  - Balance disorder [Recovered/Resolved]
  - Dizziness [Recovered/Resolved]
  - Fatigue [Recovered/Resolved]
  - Oral herpes [Recovered/Resolved]
  - Fall [Unknown]
  - Head injury [Recovered/Resolved]
  - Ligament rupture [Not Recovered/Not Resolved]
  - Middle insomnia [Not Recovered/Not Resolved]
  - Pollakiuria [Not Recovered/Not Resolved]
  - Back pain [Recovered/Resolved]
  - Muscle strain [Recovered/Resolved]
  - Pain in extremity [Not Recovered/Not Resolved]
  - Injection site inflammation [Recovered/Resolved]
  - Purulence [Recovered/Resolved]
  - Phlebitis [Not Recovered/Not Resolved]
  - Infection [Recovered/Resolved]
  - Visual impairment [Not Recovered/Not Resolved]
  - Scar [Recovered/Resolved]
  - Pyrexia [Recovered/Resolved]
  - Lipoedema [Recovering/Resolving]
  - SARS-CoV-2 antibody test negative [Not Recovered/Not Resolved]

NARRATIVE: CASE EVENT DATE: 20181126
